FAERS Safety Report 15254252 (Version 1)
Quarter: 2018Q3

REPORT INFORMATION
  Report Type: Spontaneous
  Country: US (occurrence: US)
  Receive Date: 20180717
  Receipt Date: 20180717
  Transmission Date: 20181010
  Serious: Yes (Hospitalization)
  Sender: FDA-Public Use
  Company Number: None

PATIENT
  Age: 15 Year
  Sex: Male

DRUGS (2)
  1. CYTRA?3 SYP [Concomitant]
  2. TOBRAMYCIN 300MG [Suspect]
     Active Substance: TOBRAMYCIN
     Indication: UPPER RESPIRATORY TRACT INFECTION
     Dosage: ?          OTHER ROUTE:NEBULIZER?
     Dates: start: 20140206

REACTIONS (1)
  - Tracheal oedema [None]

NARRATIVE: CASE EVENT DATE: 20180701
